FAERS Safety Report 5309975-X (Version None)
Quarter: 2007Q2

REPORT INFORMATION
  Report Type: 
  Country: None (occurrence: None)
  Receive Date: 20070427
  Receipt Date: 20070419
  Transmission Date: 20071010
  Serious: Yes (Other)
  Sender: FDA-Public Use
  Company Number: 2007AC00729

PATIENT
  Age: 48 Year
  Sex: Female
  Weight: 49 kg

DRUGS (3)
  1. ARIMIDEX [Suspect]
     Indication: BREAST CANCER
     Route: 048
     Dates: start: 19990101
  2. NOLVADEX [Suspect]
     Indication: BREAST CANCER
     Route: 048
     Dates: start: 19910101, end: 19970101
  3. FEMARA [Suspect]
     Indication: BREAST CANCER
     Route: 048
     Dates: start: 19970101, end: 19990101

REACTIONS (1)
  - CUTANEOUS LUPUS ERYTHEMATOSUS [None]
